FAERS Safety Report 7630742-6 (Version None)
Quarter: 2011Q3

REPORT INFORMATION
  Report Type: 
  Country: None (occurrence: None)
  Receive Date: 20110722
  Receipt Date: 20110714
  Transmission Date: 20111222
  Serious: Yes (Other)
  Sender: FDA-Public Use
  Company Number: PT-MERCK-1107PRT00008

PATIENT
  Age: 3 Year
  Sex: Male

DRUGS (1)
  1. SINGULAIR [Suspect]
     Indication: RHINITIS ALLERGIC
     Route: 048
     Dates: start: 20110501, end: 20110501

REACTIONS (4)
  - AGITATION [None]
  - INSOMNIA [None]
  - NIGHTMARE [None]
  - HYPERHIDROSIS [None]
